FAERS Safety Report 16509124 (Version 1)
Quarter: 2019Q3

REPORT INFORMATION
  Report Type: Spontaneous
  Country: FR (occurrence: FR)
  Receive Date: 20190701
  Receipt Date: 20190701
  Transmission Date: 20191004
  Serious: Yes (Other)
  Sender: FDA-Public Use
  Company Number: FR-MYLANLABS-2019M1059410

PATIENT
  Age: 87 Year
  Sex: Male
  Weight: 71 kg

DRUGS (4)
  1. EUPANTOL [Concomitant]
     Active Substance: PANTOPRAZOLE SODIUM
     Dosage: UNK
  2. UVEDOSE [Concomitant]
     Active Substance: CHOLECALCIFEROL
  3. AMIODARONE [Suspect]
     Active Substance: AMIODARONE
     Indication: ATRIAL FIBRILLATION
     Dosage: UNK
     Route: 048
     Dates: start: 201803
  4. TAMSULOSINE                        /01280301/ [Concomitant]
     Active Substance: TAMSULOSIN

REACTIONS (1)
  - Blood thyroid stimulating hormone decreased [Not Recovered/Not Resolved]

NARRATIVE: CASE EVENT DATE: 20181228
